FAERS Safety Report 4488938-0 (Version None)
Quarter: 2004Q3

REPORT INFORMATION
  Report Type: 
  Country: None (occurrence: None)
  Receive Date: 20040921
  Receipt Date: 20040409
  Transmission Date: 20050211
  Serious: No
  Sender: FDA-Public Use
  Company Number: 163-20785-04040313

PATIENT
  Sex: Male

DRUGS (4)
  1. THALOMID [Suspect]
     Indication: MULTIPLE MYELOMA
     Dosage: QD, ORAL
     Route: 048
     Dates: start: 20040314, end: 20040314
  2. THALOMID [Suspect]
     Indication: MULTIPLE MYELOMA
     Dosage: QD, ORAL
     Route: 048
     Dates: start: 20040321
  3. DEXAMETHASONE [Suspect]
     Dosage: QD,
     Dates: start: 20040314, end: 20040314
  4. DEXAMETHASONE [Suspect]
     Dosage: QD,
     Dates: start: 20040321

REACTIONS (27)
  - ABDOMINAL DISTENSION [None]
  - ABNORMAL FAECES [None]
  - AGGRESSION [None]
  - ANAL DISCOMFORT [None]
  - ANXIETY [None]
  - BLOOD PRESSURE DECREASED [None]
  - BUTTOCK PAIN [None]
  - CONSTIPATION [None]
  - CUSHINGOID [None]
  - DEFAECATION URGENCY [None]
  - DIZZINESS [None]
  - DRY THROAT [None]
  - DYSPHONIA [None]
  - EXCITABILITY [None]
  - FATIGUE [None]
  - HEADACHE [None]
  - HYPERTENSION [None]
  - OEDEMA [None]
  - PAIN IN EXTREMITY [None]
  - PRURITUS [None]
  - PSYCHOMOTOR HYPERACTIVITY [None]
  - RASH SCALY [None]
  - SOMNOLENCE [None]
  - SWELLING FACE [None]
  - TINNITUS [None]
  - URINE FLOW DECREASED [None]
  - WEIGHT INCREASED [None]
